FAERS Safety Report 8829881 (Version 1)
Quarter: 2012Q4

REPORT INFORMATION
  Report Type: Spontaneous
  Country: US (occurrence: None)
  Receive Date: 20121005
  Receipt Date: 20121005
  Transmission Date: 20130627
  Serious: Yes (Death)
  Sender: FDA-Public Use
  Company Number: None

PATIENT
  Age: 82 Year
  Sex: Male
  Weight: 101.15 kg

DRUGS (2)
  1. ZYVOX [Suspect]
     Indication: JOINT INFECTION
     Route: 048
     Dates: start: 20120731, end: 20120828
  2. LEVOFLOXACIN [Suspect]
     Indication: JOINT INFECTION
     Route: 048
     Dates: start: 20120731, end: 20120828

REACTIONS (10)
  - Asthenia [None]
  - Fatigue [None]
  - Decreased appetite [None]
  - Dry mouth [None]
  - Weight increased [None]
  - Dyspnoea [None]
  - Insomnia [None]
  - Memory impairment [None]
  - Confusional state [None]
  - Respiratory disorder [None]
